FAERS Safety Report 7412225-1 (Version None)
Quarter: 2011Q2

REPORT INFORMATION
  Report Type: 
  Country: None (occurrence: None)
  Receive Date: 20110413
  Receipt Date: 20110406
  Transmission Date: 20111010
  Serious: Yes (Hospitalization)
  Sender: FDA-Public Use
  Company Number: FR-ROCHE-751200

PATIENT
  Sex: Female

DRUGS (6)
  1. NEXIUM [Concomitant]
     Route: 048
  2. XELODA [Suspect]
     Dosage: 7 TABLETS
     Route: 048
     Dates: start: 20100501, end: 20100823
  3. PREVISCAN [Interacting]
     Indication: PULMONARY EMBOLISM
     Route: 048
     Dates: end: 20100825
  4. BISOPROLOL FUMARATE [Concomitant]
     Dosage: 1 DOSE DAILY
     Route: 048
  5. LASIX [Concomitant]
     Route: 048
  6. ATARAX [Concomitant]
     Route: 048

REACTIONS (4)
  - ILEITIS [None]
  - GENERAL PHYSICAL HEALTH DETERIORATION [None]
  - MELAENA [None]
  - DRUG INTERACTION [None]
